FAERS Safety Report 5065426-4 (Version None)
Quarter: 2006Q3

REPORT INFORMATION
  Report Type: 
  Country: None (occurrence: None)
  Receive Date: 20060731
  Receipt Date: 20060726
  Transmission Date: 20061208
  Serious: Yes (Disabling)
  Sender: FDA-Public Use
  Company Number: PHEH2006US09567

PATIENT
  Age: 55 Year
  Sex: Female
  Weight: 63.492 kg

DRUGS (2)
  1. FEMARA [Suspect]
     Dates: start: 20060101
  2. XELODA [Suspect]
     Indication: BREAST CANCER
     Dates: end: 20060101

REACTIONS (4)
  - DUPUYTREN'S CONTRACTURE [None]
  - HYPERKERATOSIS [None]
  - SKIN HYPERTROPHY [None]
  - SKIN LESION [None]
